FAERS Safety Report 10407483 (Version 1)
Quarter: 2014Q1

REPORT INFORMATION
  Report Type: Spontaneous
  Country: US (occurrence: None)
  Receive Date: 20130225
  Receipt Date: 20130225
  Transmission Date: 20141002
  Serious: No
  Sender: FDA-Public Use
  Company Number: 365853N

PATIENT
  Age: 70 Year
  Sex: Female

DRUGS (1)
  1. VICTOZA (LIRAGLUTIDE) SOLUTION FOR INJECTION, 6MG/ML [Suspect]
     Indication: TYPE 2 DIABETES MELLITUS
     Route: 058
     Dates: start: 2012, end: 2012

REACTIONS (2)
  - Dizziness [None]
  - Nausea [None]
